FAERS Safety Report 6651854-X (Version None)
Quarter: 2010Q1

REPORT INFORMATION
  Report Type: 
  Country: None (occurrence: None)
  Receive Date: 20100325
  Receipt Date: 20100312
  Transmission Date: 20100710
  Serious: Yes (Other)
  Sender: FDA-Public Use
  Company Number: PHHY2010JP13091

PATIENT

DRUGS (1)
  1. VOLTAREN [Suspect]
     Route: 048

REACTIONS (1)
  - COLITIS COLLAGENOUS [None]
